FAERS Safety Report 9015888 (Version 3)
Quarter: 2013Q1

REPORT INFORMATION
  Report Type: Spontaneous
  Country: US (occurrence: US)
  Receive Date: 20130116
  Receipt Date: 20130308
  Transmission Date: 20140127
  Serious: No
  Sender: FDA-Public Use
  Company Number: US-PFIZER INC-2013015470

PATIENT
  Age: 61 Year
  Sex: Female
  Weight: 50.79 kg

DRUGS (3)
  1. EFFEXOR XR [Suspect]
     Indication: DEPRESSION
     Dosage: 75 MG, 1X/DAY
     Route: 048
     Dates: start: 201210, end: 201211
  2. EFFEXOR XR [Suspect]
     Dosage: UNK, EVERY THREE DAYS
     Route: 048
     Dates: start: 201211, end: 201211
  3. EFFEXOR XR [Suspect]
     Dosage: UNK
     Route: 048
     Dates: end: 201301

REACTIONS (14)
  - Paraesthesia [Not Recovered/Not Resolved]
  - Therapy cessation [Unknown]
  - Drug intolerance [Unknown]
  - Drug effect incomplete [Unknown]
  - Abdominal pain upper [Not Recovered/Not Resolved]
  - Insomnia [Not Recovered/Not Resolved]
  - Muscle spasms [Not Recovered/Not Resolved]
  - Restless legs syndrome [Not Recovered/Not Resolved]
  - Nausea [Recovered/Resolved]
  - Dizziness [Not Recovered/Not Resolved]
  - Middle insomnia [Not Recovered/Not Resolved]
  - Inappropriate schedule of drug administration [Unknown]
  - Withdrawal syndrome [Unknown]
  - Asthenia [Unknown]
